FAERS Safety Report 18489601 (Version 1)
Quarter: 2020Q4

REPORT INFORMATION
  Report Type: Spontaneous
  Country: FR (occurrence: FR)
  Receive Date: 20201111
  Receipt Date: 20201111
  Transmission Date: 20210114
  Serious: Yes (Hospitalization, Other)
  Sender: FDA-Public Use
  Company Number: FR-AUROBINDO-AUR-APL-2020-028095

PATIENT
  Age: 62 Year
  Sex: Male

DRUGS (3)
  1. BISOPROLOL QUIVER 1,25 MG, TABLETS [Suspect]
     Active Substance: BISOPROLOL FUMARATE
     Indication: VALVULOPLASTY CARDIAC
     Dosage: 1.25 MILLIGRAM, ONCE A DAY
     Route: 048
     Dates: start: 20200417
  2. INSULIN [Concomitant]
     Active Substance: INSULIN NOS
     Indication: PRODUCT USED FOR UNKNOWN INDICATION
     Dosage: UNK (LATE INSULIN IN THE EVENING)
     Route: 065
     Dates: start: 2016
  3. INSULIN [Concomitant]
     Active Substance: INSULIN NOS
     Dosage: UNK, BEFORE EACH MEAL 3 TIMES A DAY
     Route: 065
     Dates: start: 2016

REACTIONS (5)
  - Balance disorder [Recovered/Resolved]
  - Cerebrovascular accident [Recovered/Resolved]
  - Intentional product misuse [Unknown]
  - Dizziness postural [Recovered/Resolved]
  - Blood pressure decreased [Recovered/Resolved]

NARRATIVE: CASE EVENT DATE: 202004
